FAERS Safety Report 7866148-4 (Version None)
Quarter: 2011Q4

REPORT INFORMATION
  Report Type: 
  Country: None (occurrence: None)
  Receive Date: 20111028
  Receipt Date: 20110502
  Transmission Date: 20120403
  Serious: No
  Sender: FDA-Public Use
  Company Number: US-GLAXOSMITHKLINE-A0925340B

PATIENT

DRUGS (4)
  1. RHINOCORT [Concomitant]
     Route: 064
  2. NEXIUM [Concomitant]
     Route: 064
  3. ADVAIR DISKUS 100/50 [Suspect]
     Indication: ASTHMA
     Dosage: 1PUFF TWICE PER DAY
     Route: 064
  4. ALLEGRA [Concomitant]
     Route: 064

REACTIONS (2)
  - MATERNAL EXPOSURE DURING PREGNANCY [None]
  - FOETAL GROWTH RESTRICTION [None]
